FAERS Safety Report 11621620 (Version 3)
Quarter: 2018Q1

REPORT INFORMATION
  Report Type: Spontaneous
  Country: US (occurrence: US)
  Receive Date: 20151013
  Receipt Date: 20180308
  Transmission Date: 20180508
  Serious: No
  Sender: FDA-Public Use
  Company Number: US-ASTRAZENECA-2015SE98135

PATIENT
  Age: 72 Year
  Sex: Female

DRUGS (9)
  1. WARFARIN [Concomitant]
     Active Substance: WARFARIN
  2. LOSARTAN. [Concomitant]
     Active Substance: LOSARTAN
  3. FASLODEX [Suspect]
     Active Substance: FULVESTRANT
     Route: 030
  4. IBRANCE [Suspect]
     Active Substance: PALBOCICLIB
     Indication: OESTROGEN RECEPTOR ASSAY POSITIVE
     Dosage: TAKE ONE CAPSULE BY MOUTH ONCE DAILY WITH FOOD FOR 21 DAYS AND THEN 7 DAYS OFF
     Route: 048
     Dates: start: 20150110
  5. IBRANCE [Suspect]
     Active Substance: PALBOCICLIB
     Indication: OESTROGEN RECEPTOR ASSAY POSITIVE
     Route: 048
     Dates: start: 201509
  6. OXYCOD [Concomitant]
  7. ALPRAZOLAM. [Concomitant]
     Active Substance: ALPRAZOLAM
  8. METOPROLOL. [Concomitant]
     Active Substance: METOPROLOL
  9. NYSTATIN. [Concomitant]
     Active Substance: NYSTATIN

REACTIONS (6)
  - Full blood count decreased [Unknown]
  - Cervical spinal stenosis [Unknown]
  - Migraine [Unknown]
  - Nerve compression [Unknown]
  - Fatigue [Unknown]
  - Alopecia [Unknown]
